FAERS Safety Report 15603208 (Version 7)
Quarter: 2020Q4

REPORT INFORMATION
  Report Type: Spontaneous
  Country: GB (occurrence: GB)
  Receive Date: 20181109
  Receipt Date: 20201111
  Transmission Date: 20210113
  Serious: Yes (Death, Hospitalization, Other)
  Sender: FDA-Public Use
  Company Number: GB-AMGEN-GBRNI2018155183

PATIENT
  Age: 55 Year
  Sex: Female

DRUGS (42)
  1. XGEVA [Suspect]
     Active Substance: DENOSUMAB
     Indication: BREAST CANCER METASTATIC
     Dosage: 120 MILLIGRAM, QMO
     Route: 058
     Dates: start: 20150430
  2. XGEVA [Suspect]
     Active Substance: DENOSUMAB
     Dosage: 120 MILLIGRAM, QD
     Route: 042
     Dates: start: 20150701, end: 20150701
  3. DOCETAXEL. [Suspect]
     Active Substance: DOCETAXEL
     Indication: BREAST CANCER METASTATIC
     Dosage: 116 MG, Q3WK
     Route: 042
     Dates: start: 20150708, end: 20150729
  4. TRASTUZUMAB;VORHYALURONIDASE ALFA [Suspect]
     Active Substance: HYALURONIDASE (HUMAN RECOMBINANT)\TRASTUZUMAB
     Indication: BREAST CANCER METASTATIC
     Dosage: 600 MILLIGRAM, Q3WK
     Route: 058
     Dates: start: 20150520, end: 20150520
  5. DOMPERIDONE [Concomitant]
     Active Substance: DOMPERIDONE
     Indication: ILLNESS
     Dosage: 30 MG, QD
     Route: 048
     Dates: start: 20150609, end: 20150611
  6. DOMPERIDONE [Concomitant]
     Active Substance: DOMPERIDONE
     Dosage: 30 MG, QD
     Route: 048
     Dates: start: 20150727, end: 20150729
  7. DEXAMETHASONE. [Concomitant]
     Active Substance: DEXAMETHASONE
     Dosage: 4 MILLIGRAM, QD (4 TABLETS 2 A DAY)
     Route: 048
     Dates: start: 20150727, end: 20150729
  8. ONDANSETRON [Concomitant]
     Active Substance: ONDANSETRON
     Dosage: 8 MILLIGRAM
     Route: 048
     Dates: start: 20150729
  9. LANSOPRAZOLE. [Concomitant]
     Active Substance: LANSOPRAZOLE
     Dosage: 30 MILLIGRAM, QD
     Route: 048
     Dates: start: 20150521
  10. SANDO K [POTASSIUM BICARBONATE;POTASSIUM CHLORIDE] [Concomitant]
     Active Substance: POTASSIUM BICARBONATE\POTASSIUM CHLORIDE
     Dosage: 2 DOSAGE FORM
     Route: 048
     Dates: start: 20150609, end: 20150611
  11. SODIUM CHLORIDE. [Concomitant]
     Active Substance: SODIUM CHLORIDE
     Dosage: UNK
     Route: 042
     Dates: start: 20150609, end: 20150609
  12. HEPARIN [Concomitant]
     Active Substance: HEPARIN SODIUM
     Dosage: 500 IU, UNK ( IN 5 ML)
     Route: 042
     Dates: start: 20150527, end: 20150527
  13. CYCLIZINE HYDROCHLORIDE [Concomitant]
     Active Substance: CYCLIZINE HYDROCHLORIDE
     Dosage: 150 MG, QD
     Route: 048
     Dates: start: 20160627
  14. ONDANSETRON [Concomitant]
     Active Substance: ONDANSETRON
     Dosage: 8 MILLIGRAM
     Route: 048
     Dates: start: 20160210
  15. XGEVA [Suspect]
     Active Substance: DENOSUMAB
     Dosage: 120 MILLIGRAM, QD
     Route: 042
     Dates: start: 20150821, end: 20150821
  16. TRASTUZUMAB. [Suspect]
     Active Substance: TRASTUZUMAB
     Dosage: 450 MILLIGRAM, Q3WK
     Route: 042
     Dates: start: 20150611
  17. DOMPERIDONE [Concomitant]
     Active Substance: DOMPERIDONE
     Dosage: 10 MILLIGRAM
     Route: 048
     Dates: start: 20160210
  18. DEXAMETHASONE. [Concomitant]
     Active Substance: DEXAMETHASONE
     Dosage: 2 MILLIGRAM, QD
     Route: 048
     Dates: start: 20150613, end: 20150704
  19. CYCLIZINE HYDROCHLORIDE [Concomitant]
     Active Substance: CYCLIZINE HYDROCHLORIDE
     Dosage: 150 MG, QD
     Route: 048
     Dates: start: 20150521, end: 201602
  20. LOPERAMIDE [Concomitant]
     Active Substance: LOPERAMIDE
     Dosage: 2 MG, UNK
     Route: 048
     Dates: start: 20150821
  21. DEXAMETHASONE. [Concomitant]
     Active Substance: DEXAMETHASONE
     Dosage: 4 MILLIGRAM, QD (4 TABLETS 2 A DAY)
     Route: 048
     Dates: start: 20150610, end: 20150612
  22. OXYCODONE [Concomitant]
     Active Substance: OXYCODONE
     Dosage: 10 MILLIGRAM
     Route: 048
     Dates: start: 20150521
  23. TRASTUZUMAB. [Suspect]
     Active Substance: TRASTUZUMAB
     Indication: BREAST CANCER METASTATIC
     Dosage: 600 MILLIGRAM
     Route: 042
     Dates: start: 20150518, end: 20150518
  24. DOCETAXEL. [Suspect]
     Active Substance: DOCETAXEL
     Indication: HER2 POSITIVE BREAST CANCER
     Dosage: 132 MILLIGRAM, Q3WK
     Route: 042
     Dates: start: 20150519, end: 20150708
  25. DEXAMETHASONE. [Concomitant]
     Active Substance: DEXAMETHASONE
     Dosage: 4 MILLIGRAM, QD (4 TABLETS 2 A DAY)
     Route: 048
     Dates: start: 20150912, end: 20150914
  26. DEXAMETHASONE. [Concomitant]
     Active Substance: DEXAMETHASONE
     Dosage: 16 MILLIGRAM, QD (4 TABS)
     Route: 048
     Dates: start: 20160628, end: 20160718
  27. ONDANSETRON [Concomitant]
     Active Substance: ONDANSETRON
     Dosage: 8 MILLIGRAM
     Route: 048
     Dates: start: 20150826
  28. XGEVA [Suspect]
     Active Substance: DENOSUMAB
     Indication: HER2 POSITIVE BREAST CANCER
     Dosage: 120 MILLIGRAM, QMO
     Route: 058
     Dates: start: 20131007, end: 20160616
  29. XGEVA [Suspect]
     Active Substance: DENOSUMAB
     Dosage: 120 MILLIGRAM, QD
     Route: 042
     Dates: start: 20150912, end: 20150912
  30. PERTUZUMAB. [Suspect]
     Active Substance: PERTUZUMAB
     Indication: HER2 POSITIVE BREAST CANCER
     Dosage: 840 MILLIGRAM
     Route: 042
     Dates: start: 20150518, end: 20150518
  31. DOMPERIDONE [Concomitant]
     Active Substance: DOMPERIDONE
     Dosage: 30 MG, QD
     Route: 048
     Dates: start: 20150912, end: 20150914
  32. DEXAMETHASONE. [Concomitant]
     Active Substance: DEXAMETHASONE
     Dosage: UNK
     Route: 048
     Dates: start: 20150729
  33. TRASTUZUMAB. [Suspect]
     Active Substance: TRASTUZUMAB
     Indication: HER2 POSITIVE BREAST CANCER
     Dosage: 600 MILLIGRAM, Q3WK
     Route: 058
     Dates: start: 20150520, end: 20150520
  34. CAPECITABINE. [Suspect]
     Active Substance: CAPECITABINE
     Indication: BREAST CANCER METASTATIC
     Dosage: 500 MILLIGRAM, Q3WK
     Route: 048
     Dates: start: 20160510, end: 20160521
  35. DOCETAXEL. [Suspect]
     Active Substance: DOCETAXEL
     Dosage: 95 MILLIGRAM, Q3WK
     Route: 042
     Dates: start: 20150826, end: 20150915
  36. OXYCODONE [Concomitant]
     Active Substance: OXYCODONE
     Dosage: 40 MILLIGRAM, QD
     Route: 048
     Dates: start: 20150521
  37. CAPECITABINE. [Suspect]
     Active Substance: CAPECITABINE
     Indication: HER2 POSITIVE BREAST CANCER
     Dosage: 1 DF, QD (1500 MG AND 2000 MG)
     Route: 048
     Dates: start: 20160510, end: 20160531
  38. PERTUZUMAB. [Suspect]
     Active Substance: PERTUZUMAB
     Indication: BREAST CANCER METASTATIC
     Dosage: 420 MILLIGRAM, Q3WK
     Route: 042
     Dates: start: 20150611
  39. DEXAMETHASONE. [Concomitant]
     Active Substance: DEXAMETHASONE
     Dosage: 4 MILLIGRAM, QD (4 TABLETS 2 A DAY)
     Route: 048
     Dates: start: 20150821, end: 20150823
  40. CHLORHEXIDINE GLUCONATE. [Concomitant]
     Active Substance: CHLORHEXIDINE GLUCONATE
     Dosage: 20 ML, QD
     Route: 048
     Dates: start: 20150708
  41. OXYCODONE [Concomitant]
     Active Substance: OXYCODONE
     Dosage: 10 MILLIGRAM, QD
     Route: 048
     Dates: start: 20150521
  42. 3M CAVILON ANTIFUNGAL [Concomitant]
     Active Substance: MICONAZOLE NITRATE
     Dosage: 2 UNK, QD (CAVILON DURABLE BARRIER CREAMAPPLIED DURING CHANGING PICC LINE DRESSINGS)
     Route: 061
     Dates: start: 20151028

REACTIONS (35)
  - Neuropathy peripheral [Recovered/Resolved]
  - Impaired gastric emptying [Recovered/Resolved]
  - Spinal fracture [Recovered/Resolved]
  - Pruritus [Recovered/Resolved]
  - Vision blurred [Recovered/Resolved]
  - Rash erythematous [Recovered/Resolved]
  - Metastases to meninges [Fatal]
  - Eye haemorrhage [Recovered/Resolved]
  - Vomiting [Recovered/Resolved]
  - Eye pruritus [Recovered/Resolved]
  - Weight increased [Recovering/Resolving]
  - Fatigue [Recovered/Resolved]
  - Vomiting [Recovered/Resolved]
  - Disease progression [Fatal]
  - Hypoglycaemia [Recovered/Resolved]
  - Anxiety [Recovered/Resolved]
  - Cushingoid [Recovered/Resolved]
  - Breast tenderness [Unknown]
  - Claustrophobia [Recovered/Resolved]
  - Hypoglycaemia [Recovered/Resolved]
  - Nausea [Recovering/Resolving]
  - Pericardial effusion [Recovered/Resolved]
  - Incorrect route of product administration [Unknown]
  - Decreased appetite [Recovered/Resolved]
  - Visual impairment [Recovered/Resolved]
  - Illness [Recovering/Resolving]
  - Catheter site inflammation [Recovered/Resolved]
  - Lethargy [Recovered/Resolved]
  - Dry eye [Recovered/Resolved]
  - Back pain [Not Recovered/Not Resolved]
  - Hypocalcaemia [Recovered/Resolved]
  - Vomiting [Recovered/Resolved]
  - Erythema [Recovered/Resolved]
  - Rash [Recovered/Resolved]
  - Palpitations [Recovered/Resolved]

NARRATIVE: CASE EVENT DATE: 2015
